FAERS Safety Report 23347087 (Version 1)
Quarter: 2023Q4

REPORT INFORMATION
  Report Type: Spontaneous
  Country: CN (occurrence: None)
  Receive Date: 20231228
  Receipt Date: 20231228
  Transmission Date: 20240110
  Serious: Yes (Hospitalization, Other)
  Sender: FDA-Public Use
  Company Number: 2023A278015

PATIENT
  Age: 55 Year
  Sex: Female

DRUGS (3)
  1. SYMBICORT [Suspect]
     Active Substance: BUDESONIDE\FORMOTEROL FUMARATE DIHYDRATE
     Indication: Inflammation
     Dosage: ONCE IN THE MORNING AND ONCE IN THE EVENING
     Route: 055
     Dates: start: 20231130
  2. SYMBICORT [Suspect]
     Active Substance: BUDESONIDE\FORMOTEROL FUMARATE DIHYDRATE
     Indication: Inflammation
     Dosage: TWICE IN THE MORNING AND TWICE IN THE EVENING
     Route: 055
  3. SYMBICORT [Suspect]
     Active Substance: BUDESONIDE\FORMOTEROL FUMARATE DIHYDRATE
     Indication: Inflammation
     Dosage: DOSE UNKNOWN, AS REQUIRED AS REQUIRED
     Route: 055

REACTIONS (7)
  - Seizure [Unknown]
  - Blood potassium decreased [Unknown]
  - Alveolar oxygen partial pressure decreased [Recovered/Resolved]
  - Wheezing [Not Recovered/Not Resolved]
  - Drug ineffective [Unknown]
  - Discomfort [Unknown]
  - Device use issue [Unknown]

NARRATIVE: CASE EVENT DATE: 20231130
